FAERS Safety Report 23262546 (Version 1)
Quarter: 2023Q4

REPORT INFORMATION
  Report Type: Spontaneous
  Country: US (occurrence: US)
  Receive Date: 20231205
  Receipt Date: 20231205
  Transmission Date: 20240109
  Serious: No
  Sender: FDA-Public Use
  Company Number: US-PFIZER INC-202300400554

PATIENT
  Age: 76 Year
  Sex: Female

DRUGS (1)
  1. XELJANZ XR [Suspect]
     Active Substance: TOFACITINIB CITRATE
     Dosage: 11MG

REACTIONS (7)
  - Dizziness [Unknown]
  - Hypertension [Unknown]
  - Pain [Unknown]
  - Renal disorder [Unknown]
  - Blood cholesterol abnormal [Unknown]
  - Bladder disorder [Unknown]
  - Restless legs syndrome [Unknown]
